FAERS Safety Report 24351789 (Version 3)
Quarter: 2025Q3

REPORT INFORMATION
  Report Type: Report from Study
  Country: US (occurrence: US)
  Receive Date: 20240923
  Receipt Date: 20250915
  Transmission Date: 20251021
  Serious: Yes (Other)
  Sender: TAKEDA
  Company Number: US-TAKEDA-2022TUS015327

PATIENT
  Age: 67 Year
  Sex: Female
  Weight: 81.6 kg

DRUGS (31)
  1. HUMAN IMMUNOGLOBULIN G [Suspect]
     Active Substance: HUMAN IMMUNOGLOBULIN G
     Indication: Immunodeficiency common variable
     Dosage: 16 GRAM, Q2WEEKS
  2. ACETAMINOPHEN [Concomitant]
     Active Substance: ACETAMINOPHEN
  3. DIPHENHYDRAMINE [Concomitant]
     Active Substance: DIPHENHYDRAMINE
  4. LIDOCAINE [Concomitant]
     Active Substance: LIDOCAINE
  5. EPINEPHRINE [Concomitant]
     Active Substance: EPINEPHRINE
  6. SINGULAIR [Concomitant]
     Active Substance: MONTELUKAST SODIUM
  7. AMBIEN [Concomitant]
     Active Substance: ZOLPIDEM TARTRATE
  8. PRAVASTATIN SODIUM [Concomitant]
     Active Substance: PRAVASTATIN SODIUM
  9. CITALOPRAM [Concomitant]
     Active Substance: CITALOPRAM
  10. MESALAMINE [Concomitant]
     Active Substance: MESALAMINE
  11. ACETAMINOPHEN AND CODEINE [Concomitant]
     Active Substance: ACETAMINOPHEN\CODEINE PHOSPHATE
  12. ALENDRONATE SODIUM [Concomitant]
     Active Substance: ALENDRONATE SODIUM
  13. ALOE VERA LEAF [Concomitant]
     Active Substance: ALOE VERA LEAF
  14. LASIX [Concomitant]
     Active Substance: FUROSEMIDE
  15. MELOXICAM [Concomitant]
     Active Substance: MELOXICAM
  16. NP THYROID [Concomitant]
     Active Substance: LEVOTHYROXINE\LIOTHYRONINE
  17. TOPAMAX [Concomitant]
     Active Substance: TOPIRAMATE
  18. TIZANIDINE [Concomitant]
     Active Substance: TIZANIDINE
  19. CETIRIZINE HYDROCHLORIDE [Concomitant]
     Active Substance: CETIRIZINE HYDROCHLORIDE
  20. DIPHENHYDRAMINE HYDROCHLORIDE [Concomitant]
     Active Substance: DIPHENHYDRAMINE HYDROCHLORIDE
  21. Lmx [Concomitant]
  22. CETIRIZINE [Concomitant]
     Active Substance: CETIRIZINE HYDROCHLORIDE
  23. VITAMIN D3 [Concomitant]
     Active Substance: CHOLECALCIFEROL
  24. MINERALS\VITAMINS [Concomitant]
     Active Substance: MINERALS\VITAMINS
  25. VITAMIN B-COMPLEX [Concomitant]
     Active Substance: DEXPANTHENOL\NIACINAMIDE\PYRIDOXINE HYDROCHLORIDE\RIBOFLAVIN 5^-PHOSPHATE SODIUM\THIAMINE HYDROCHLOR
  26. PRAVASTATIN [Concomitant]
     Active Substance: PRAVASTATIN
  27. VITAMINS [Concomitant]
     Active Substance: VITAMINS
  28. ANASTROZOLE [Concomitant]
     Active Substance: ANASTROZOLE
  29. COMPAZINE [Concomitant]
     Active Substance: PROCHLORPERAZINE MALEATE
  30. KISQALI [Concomitant]
     Active Substance: RIBOCICLIB SUCCINATE
  31. TIZANIDINE HYDROCHLORIDE [Concomitant]
     Active Substance: TIZANIDINE HYDROCHLORIDE

REACTIONS (7)
  - Breast cancer female [Unknown]
  - Gastroenteritis viral [Unknown]
  - Bronchitis [Unknown]
  - Weight fluctuation [Unknown]
  - Product dose omission issue [Unknown]
  - Multiple allergies [Unknown]
  - Nausea [Unknown]

NARRATIVE: CASE EVENT DATE: 20250103
